FAERS Safety Report 13167867 (Version 1)
Quarter: 2017Q1

REPORT INFORMATION
  Report Type: Other
  Country: FR (occurrence: FR)
  Receive Date: 20170131
  Receipt Date: 20170131
  Transmission Date: 20170428
  Serious: Yes (Death, Hospitalization)
  Sender: FDA-Public Use
  Company Number: FR-PINNACLE BIOLOGICS INC-PIN-2017-00008

PATIENT
  Age: 72 Year
  Sex: Male

DRUGS (1)
  1. PHOTOFRIN [Suspect]
     Active Substance: PORFIMER SODIUM
     Indication: DYSPLASIA
     Route: 042

REACTIONS (2)
  - Cholecystitis [Fatal]
  - Septic shock [Fatal]
